FAERS Safety Report 17831413 (Version 1)
Quarter: 2020Q2

REPORT INFORMATION
  Report Type: Spontaneous
  Country: US (occurrence: US)
  Receive Date: 20200528
  Receipt Date: 20200528
  Transmission Date: 20200714
  Serious: No
  Sender: FDA-Public Use
  Company Number: US-ROCHE-2555267

PATIENT
  Sex: Male

DRUGS (2)
  1. OCREVUS [Suspect]
     Active Substance: OCRELIZUMAB
     Indication: PRODUCT USED FOR UNKNOWN INDICATION
     Route: 065
  2. AMPYRA [Concomitant]
     Active Substance: DALFAMPRIDINE

REACTIONS (8)
  - Muscle spasms [Not Recovered/Not Resolved]
  - Dystonia [Unknown]
  - Fatigue [Unknown]
  - Dizziness [Unknown]
  - Heat exhaustion [Unknown]
  - Gait disturbance [Unknown]
  - Foot deformity [Unknown]
  - Asthenia [Unknown]
